FAERS Safety Report 15438311 (Version 2)
Quarter: 2018Q4

REPORT INFORMATION
  Report Type: Spontaneous
  Country: JP (occurrence: JP)
  Receive Date: 20180928
  Receipt Date: 20181012
  Transmission Date: 20190204
  Serious: Yes (Hospitalization)
  Sender: FDA-Public Use
  Company Number: JP-REGENERON PHARMACEUTICALS, INC.-2018-37983

PATIENT

DRUGS (13)
  1. EYLEA [Suspect]
     Active Substance: AFLIBERCEPT
     Indication: AGE-RELATED MACULAR DEGENERATION
     Dosage: 2 MG, ONCE, OD
     Route: 031
     Dates: start: 20131010, end: 20131010
  2. EYLEA [Suspect]
     Active Substance: AFLIBERCEPT
     Dosage: 2 MG, ONCE, OD
     Route: 031
     Dates: start: 20131219, end: 20131219
  3. GATIFLO [Concomitant]
     Active Substance: GATIFLOXACIN
     Indication: INFECTION PROPHYLAXIS
     Dosage: UNK, QID
     Route: 047
  4. XYLOCAINE [Concomitant]
     Active Substance: LIDOCAINE HYDROCHLORIDE
     Indication: ANAESTHESIA PROCEDURE
     Dosage: DURING TREATMENT
     Route: 047
  5. POVIDONE-IODINE. [Concomitant]
     Active Substance: POVIDONE-IODINE
     Indication: INFECTION PROPHYLAXIS
     Dosage: DURING TREATMENT
     Route: 047
  6. EYLEA [Suspect]
     Active Substance: AFLIBERCEPT
     Dosage: 2 MG, ONCE, OD
     Route: 031
     Dates: start: 20150205, end: 20150205
  7. EYLEA [Suspect]
     Active Substance: AFLIBERCEPT
     Dosage: 2 MG, ONCE, OD
     Route: 031
     Dates: start: 20171208, end: 20171208
  8. RANIBIZUMAB. [Concomitant]
     Active Substance: RANIBIZUMAB
     Indication: PRODUCT USED FOR UNKNOWN INDICATION
     Dosage: OU
     Route: 031
  9. EYLEA [Suspect]
     Active Substance: AFLIBERCEPT
     Dosage: 2 MG, ONCE, OD
     Route: 031
     Dates: start: 20160415, end: 20160415
  10. EYLEA [Suspect]
     Active Substance: AFLIBERCEPT
     Dosage: 2 MG, ONCE, OD
     Route: 031
     Dates: start: 20151210, end: 20151210
  11. EYLEA [Suspect]
     Active Substance: AFLIBERCEPT
     Dosage: 2 MG, ONCE, OD
     Route: 031
     Dates: start: 20180417, end: 20180417
  12. MYDRIN P [Concomitant]
     Active Substance: PHENYLEPHRINE HYDROCHLORIDE\TROPICAMIDE
     Indication: MYDRIASIS
     Dosage: DURING TREATMENT AND EXAMINATION
     Route: 047
  13. EYLEA [Suspect]
     Active Substance: AFLIBERCEPT
     Dosage: 2 MG, ONCE, OD
     Route: 031
     Dates: start: 20170207, end: 20170207

REACTIONS (2)
  - Inappropriate schedule of product administration [Unknown]
  - Coronary artery stenosis [Recovering/Resolving]

NARRATIVE: CASE EVENT DATE: 201807
